FAERS Safety Report 7361053-4 (Version None)
Quarter: 2011Q1

REPORT INFORMATION
  Report Type: 
  Country: None (occurrence: None)
  Receive Date: 20110318
  Receipt Date: 20110310
  Transmission Date: 20110831
  Serious: Yes (Other)
  Sender: FDA-Public Use
  Company Number: CHPA2011US03882

PATIENT
  Age: 9 Year
  Sex: Female
  Weight: 36.735 kg

DRUGS (2)
  1. TRIAMINIC FEVER REDUCER PAIN RELIEVER [Suspect]
     Indication: PYREXIA
     Dosage: 1 TSP, ONCE/SINGLE
     Route: 048
     Dates: start: 20110309, end: 20110309
  2. TRIAMINIC FEVER REDUCER PAIN RELIEVER [Suspect]
     Dosage: 2 TSP, ONCE/SINGLE
     Route: 048
     Dates: start: 20110309, end: 20110309

REACTIONS (5)
  - CRYING [None]
  - TREMOR [None]
  - COGNITIVE DISORDER [None]
  - PARANOIA [None]
  - FEAR [None]
